FAERS Safety Report 16475323 (Version 1)
Quarter: 2019Q2

REPORT INFORMATION
  Report Type: Spontaneous
  Country: US (occurrence: US)
  Receive Date: 20190625
  Receipt Date: 20190625
  Transmission Date: 20190711
  Serious: No
  Sender: FDA-Public Use
  Company Number: US-SA-2019SA171542

PATIENT
  Sex: Male

DRUGS (1)
  1. AUBAGIO [Suspect]
     Active Substance: TERIFLUNOMIDE
     Indication: MULTIPLE SCLEROSIS
     Dosage: 14 MG, QD
     Route: 048
     Dates: start: 20190602

REACTIONS (8)
  - Fatigue [Unknown]
  - Decreased interest [Unknown]
  - Irritability [Unknown]
  - Increased appetite [Unknown]
  - Muscle spasms [Unknown]
  - Alopecia [Unknown]
  - Mood swings [Unknown]
  - Depression [Unknown]
